FAERS Safety Report 20359208 (Version 2)
Quarter: 2022Q1

REPORT INFORMATION
  Report Type: Spontaneous
  Country: US (occurrence: US)
  Receive Date: 20220121
  Receipt Date: 20220126
  Transmission Date: 20220423
  Serious: Yes (Other)
  Sender: FDA-Public Use
  Company Number: US-drreddys-LIT/USA/22/0146004

PATIENT
  Age: 64 Year
  Sex: Female

DRUGS (6)
  1. CITALOPRAM [Suspect]
     Active Substance: CITALOPRAM HYDROBROMIDE
     Indication: Major depression
  2. VENLAFAXINE HYDROCHLORIDE [Suspect]
     Active Substance: VENLAFAXINE HYDROCHLORIDE
     Indication: Major depression
  3. BUPROPION [Suspect]
     Active Substance: BUPROPION
     Indication: Major depression
  4. ESKETAMINE [Concomitant]
     Active Substance: ESKETAMINE
     Indication: Major depression
  5. ESKETAMINE [Concomitant]
     Active Substance: ESKETAMINE
     Dosage: ON DAY 1, 56MG WHICH WAS EVENTUALLY TITRATED TO 84MG ON DAY 11
  6. ESKETAMINE [Concomitant]
     Active Substance: ESKETAMINE
     Dosage: ON DAY 1, 56MG WHICH WAS EVENTUALLY TITRATED TO 84MG ON DAY 11

REACTIONS (1)
  - Treatment failure [Unknown]
